FAERS Safety Report 10290247 (Version 1)
Quarter: 2014Q3

REPORT INFORMATION
  Report Type: Spontaneous
  Country: US (occurrence: None)
  Receive Date: 20140707
  Receipt Date: 20140707
  Transmission Date: 20150326
  Serious: No
  Sender: FDA-Public Use
  Company Number: None

PATIENT
  Age: 59 Year
  Sex: Female
  Weight: 63.5 kg

DRUGS (2)
  1. FLUOXETINE [Suspect]
     Active Substance: FLUOXETINE\FLUOXETINE HYDROCHLORIDE
     Indication: DEPRESSION
     Route: 048
     Dates: start: 20140401, end: 20140601
  2. FLUOXETINE [Suspect]
     Active Substance: FLUOXETINE\FLUOXETINE HYDROCHLORIDE
     Indication: POST-TRAUMATIC STRESS DISORDER
     Route: 048
     Dates: start: 20140401, end: 20140601

REACTIONS (6)
  - Loss of employment [None]
  - Product substitution issue [None]
  - Product quality issue [None]
  - Major depression [None]
  - Quality of life decreased [None]
  - Disease recurrence [None]

NARRATIVE: CASE EVENT DATE: 20140401
